FAERS Safety Report 5597844-X (Version None)
Quarter: 2007Q4

REPORT INFORMATION
  Report Type: 
  Country: None (occurrence: None)
  Receive Date: 20071221
  Receipt Date: 20070302
  Transmission Date: 20080405
  Serious: Yes (Hospitalization)
  Sender: FDA-Public Use
  Company Number: US200703000550

PATIENT
  Age: 75 Year
  Sex: Male

DRUGS (2)
  1. HUMULIN 70/30 PEN [Suspect]
     Indication: TYPE 2 DIABETES MELLITUS
     Dosage: UNK
  2. ACTOS (USA) (PIOGLITAZONE HYDROCHLORIDE) [Concomitant]

REACTIONS (4)
  - BLOOD GLUCOSE DECREASED [None]
  - DIABETIC COMA [None]
  - DIZZINESS [None]
  - HYPERHIDROSIS [None]
